FAERS Safety Report 8800429 (Version 1)
Quarter: 2012Q4

REPORT INFORMATION
  Report Type: 
  Country: US (occurrence: US)
  Receive Date: 20120921
  Receipt Date: 20120921
  Transmission Date: 20130627
  Serious: Yes (Death, Hospitalization, Other)
  Sender: FDA-Public Use
  Company Number: US-ROCHE-1123523

PATIENT
  Sex: Male

DRUGS (1)
  1. AVASTIN [Suspect]
     Indication: MALIGNANT MELANOMA
     Route: 065

REACTIONS (5)
  - Death [Fatal]
  - Neuropathy peripheral [Unknown]
  - Confusional state [Unknown]
  - Ear pain [Unknown]
  - Erythema [Unknown]
